FAERS Safety Report 18958034 (Version 1)
Quarter: 2021Q1

REPORT INFORMATION
  Report Type: Spontaneous
  Country: US (occurrence: US)
  Receive Date: 20210301
  Receipt Date: 20210301
  Transmission Date: 20210420
  Serious: Yes (Hospitalization)
  Sender: FDA-Public Use
  Company Number: None

PATIENT
  Age: 89 Year
  Sex: Male
  Weight: 85 kg

DRUGS (2)
  1. LISINOPRIL (LISINOPRIL 20MG TAB) [Suspect]
     Active Substance: LISINOPRIL
     Indication: HYPERTENSION
     Route: 048
     Dates: start: 20200825, end: 20201205
  2. SULFAMETHOXAZOLE/TRIMETHOPRIM (SULFAMETHIZOLE 800MG/TRIMETHOPRIM 160MG [Suspect]
     Active Substance: SULFAMETHOXAZOLE\TRIMETHOPRIM
     Indication: INFECTION PROPHYLAXIS
     Dosage: DOSE:1/2; TAB ?
     Route: 048
     Dates: start: 20201205, end: 20201205

REACTIONS (4)
  - Acute kidney injury [None]
  - Hyperkalaemia [None]
  - Blood creatinine increased [None]
  - Blood urea increased [None]

NARRATIVE: CASE EVENT DATE: 20201205
